FAERS Safety Report 11280325 (Version 1)
Quarter: 2015Q3

REPORT INFORMATION
  Report Type: Spontaneous
  Country: US (occurrence: None)
  Receive Date: 20150716
  Receipt Date: 20150716
  Transmission Date: 20151125
  Serious: Yes (Life-Threatening, Hospitalization)
  Sender: FDA-Public Use
  Company Number: None

PATIENT
  Age: 35 Year
  Sex: Female
  Weight: 65.32 kg

DRUGS (2)
  1. BACTRIM [Suspect]
     Active Substance: SULFAMETHOXAZOLE\TRIMETHOPRIM
     Indication: BRONCHITIS
     Dates: start: 20150611, end: 20150612
  2. SYNTHROID [Concomitant]
     Active Substance: LEVOTHYROXINE SODIUM

REACTIONS (32)
  - Arthralgia [None]
  - Eye irritation [None]
  - Rash generalised [None]
  - Insomnia [None]
  - Body temperature increased [None]
  - Swelling face [None]
  - Chills [None]
  - Skin exfoliation [None]
  - Thrombophlebitis [None]
  - Dysphagia [None]
  - Rhabdomyolysis [None]
  - Electrocardiogram QT prolonged [None]
  - Musculoskeletal stiffness [None]
  - Abdominal pain upper [None]
  - Dyspnoea [None]
  - Lip swelling [None]
  - Constipation [None]
  - Fungal infection [None]
  - Eye infection [None]
  - Headache [None]
  - Dry mouth [None]
  - Oropharyngeal pain [None]
  - Chest pain [None]
  - Systemic inflammatory response syndrome [None]
  - Abdominal distension [None]
  - Decreased appetite [None]
  - Thirst [None]
  - Vulvovaginal swelling [None]
  - Limb discomfort [None]
  - Pneumonia [None]
  - Acidosis [None]
  - Sepsis [None]

NARRATIVE: CASE EVENT DATE: 20150612
